FAERS Safety Report 7364554-8 (Version None)
Quarter: 2011Q1

REPORT INFORMATION
  Report Type: 
  Country: None (occurrence: None)
  Receive Date: 20110321
  Receipt Date: 20110315
  Transmission Date: 20110831
  Serious: Yes (Other)
  Sender: FDA-Public Use
  Company Number: US-BAYER-2011-023484

PATIENT
  Sex: Female

DRUGS (5)
  1. INTERFERON BETA-1B [Suspect]
     Dosage: UNK
     Dates: start: 20060601, end: 20070805
  2. INTERFERON BETA-1B [Suspect]
     Dosage: UNK
     Dates: start: 20070811, end: 20080401
  3. INTERFERON BETA-1B [Suspect]
     Dosage: UNK
     Dates: start: 20080601, end: 20100115
  4. INTERFERON BETA-1B [Suspect]
     Dosage: 8 MIU, QOD
     Route: 058
     Dates: start: 20100326
  5. INTERFERON BETA-1B [Suspect]
     Indication: RELAPSING-REMITTING MULTIPLE SCLEROSIS
     Dosage: UNK
     Dates: start: 20051026, end: 20060504

REACTIONS (3)
  - GAIT DISTURBANCE [None]
  - BACK PAIN [None]
  - LOSS OF CONSCIOUSNESS [None]
